FAERS Safety Report 16086540 (Version 6)
Quarter: 2020Q3

REPORT INFORMATION
  Report Type: Report from Study
  Country: US (occurrence: US)
  Receive Date: 20190318
  Receipt Date: 20200822
  Transmission Date: 20201102
  Serious: Yes (Hospitalization)
  Sender: FDA-Public Use
  Company Number: US-ACTELION-A-US2019-187737

PATIENT
  Sex: Female
  Weight: 55.78 kg

DRUGS (4)
  1. TYVASO [Suspect]
     Active Substance: TREPROSTINIL
     Indication: PRODUCT USED FOR UNKNOWN INDICATION
     Route: 065
  2. TADALAFIL. [Concomitant]
     Active Substance: TADALAFIL
  3. ADEMPAS [Concomitant]
     Active Substance: RIOCIGUAT
  4. OPSUMIT [Suspect]
     Active Substance: MACITENTAN
     Indication: PULMONARY ARTERIAL HYPERTENSION
     Dosage: 10 MG, QD
     Route: 048

REACTIONS (10)
  - Vomiting [Unknown]
  - Product dose omission issue [Unknown]
  - Hypoxia [Unknown]
  - Hypertension [Unknown]
  - Hypotension [Unknown]
  - Nausea [Unknown]
  - Hospitalisation [Unknown]
  - Device occlusion [Recovered/Resolved]
  - Decreased appetite [Unknown]
  - Memory impairment [Unknown]
